FAERS Safety Report 5773086-X (Version None)
Quarter: 2008Q2

REPORT INFORMATION
  Report Type: 
  Country: None (occurrence: None)
  Receive Date: 20080611
  Receipt Date: 20080527
  Transmission Date: 20081010
  Serious: Yes (Other)
  Sender: FDA-Public Use
  Company Number: ENDC20080020

PATIENT
  Age: 34 Year
  Sex: Male

DRUGS (1)
  1. ENDOCET [Suspect]
     Indication: PAIN

REACTIONS (1)
  - DRUG DIVERSION [None]
